FAERS Safety Report 9425369 (Version 1)
Quarter: 2013Q3

REPORT INFORMATION
  Report Type: Spontaneous
  Country: FR (occurrence: FR)
  Receive Date: 20130724
  Receipt Date: 20130724
  Transmission Date: 20140515
  Serious: Yes (Life-Threatening, Hospitalization)
  Sender: FDA-Public Use
  Company Number: DSM-2013-00666

PATIENT
  Age: 73 Year
  Sex: Female
  Weight: 47 kg

DRUGS (1)
  1. OLMETEC [Suspect]
     Indication: HYPERTENSION
     Route: 048
     Dates: start: 20070313, end: 20130625

REACTIONS (14)
  - Autoimmune disorder [None]
  - Diarrhoea [None]
  - Weight decreased [None]
  - Malnutrition [None]
  - Intestinal villi atrophy [None]
  - Anti-transglutaminase antibody increased [None]
  - Malabsorption [None]
  - Renal failure acute [None]
  - Shock [None]
  - Hypokalaemia [None]
  - Coeliac disease [None]
  - Hyponatraemia [None]
  - Dehydration [None]
  - Drug ineffective [None]
